FAERS Safety Report 14375892 (Version 1)
Quarter: 2018Q1

REPORT INFORMATION
  Report Type: Spontaneous
  Country: US (occurrence: US)
  Receive Date: 20180111
  Receipt Date: 20180111
  Transmission Date: 20180509
  Serious: Yes (Other)
  Sender: FDA-Public Use
  Company Number: None

PATIENT
  Age: 39 Year
  Sex: Male
  Weight: 116.5 kg

DRUGS (2)
  1. SUCCINYCHOLINE [Suspect]
     Active Substance: SUCCINYLCHOLINE
     Indication: ENDOTRACHEAL INTUBATION
     Dosage: OTHER FREQUENCY:ONCE X 2;?
     Route: 040
     Dates: start: 20180110
  2. SUCCINYCHOLINE [Suspect]
     Active Substance: SUCCINYLCHOLINE
     Indication: CENTRAL VENOUS CATHETERISATION
     Dosage: OTHER FREQUENCY:ONCE X 2;?
     Route: 040
     Dates: start: 20180110

REACTIONS (6)
  - Anaesthetic complication [None]
  - Cough [None]
  - Drug ineffective [None]
  - Procedural complication [None]
  - Surgical procedure repeated [None]
  - Agitation [None]

NARRATIVE: CASE EVENT DATE: 20180110
